FAERS Safety Report 4755495-0 (Version None)
Quarter: 2005Q3

REPORT INFORMATION
  Report Type: 
  Country: None (occurrence: None)
  Receive Date: 20050830
  Receipt Date: 20041022
  Transmission Date: 20060218
  Serious: No
  Sender: FDA-Public Use
  Company Number: US-BRISTOL-MYERS SQUIBB COMPANY-12741849

PATIENT
  Age: 27 Year
  Sex: Female

DRUGS (2)
  1. ABILIFY [Suspect]
     Indication: SCHIZOAFFECTIVE DISORDER
     Dosage: TITRATED 15MG TO 0 MG/DAY AT DELIVERY AND FOR 3 MONTHS AFTER DELIVERY.  10 MG/DAY AT TIME OF REPORT.
     Route: 048
  2. PRENATAL VITAMINS [Concomitant]

REACTIONS (2)
  - NORMAL NEWBORN [None]
  - PREGNANCY [None]
